FAERS Safety Report 6967482-2 (Version None)
Quarter: 2010Q3

REPORT INFORMATION
  Report Type: 
  Country: None (occurrence: None)
  Receive Date: 20100907
  Receipt Date: 20100825
  Transmission Date: 20110219
  Serious: Yes (Death, Hospitalization, Other)
  Sender: FDA-Public Use
  Company Number: JP-SANOFI-AVENTIS-2010SA050613

PATIENT
  Age: 65 Year
  Sex: Male
  Weight: 83 kg

DRUGS (7)
  1. ASPIRIN [Suspect]
     Indication: THROMBOSIS PROPHYLAXIS
     Dosage: DOSAGE UNKNOWN
     Route: 048
  2. ASPIRIN [Suspect]
     Dosage: DOSAGE UNKNOWN
     Route: 048
  3. CLOPIDOGREL BISULFATE [Suspect]
     Indication: CORONARY ARTERY RESTENOSIS
     Dosage: DOSAGE UNKNOWN
     Route: 048
  4. CANDESARTAN CILEXETIL [Concomitant]
  5. ACARBOSE [Concomitant]
  6. PIOGLITAZONE HCL [Concomitant]
  7. ATORVASTATIN CALCIUM [Concomitant]

REACTIONS (8)
  - ANAEMIA [None]
  - ARTERIAL HAEMORRHAGE [None]
  - DEVICE OCCLUSION [None]
  - MULTI-ORGAN FAILURE [None]
  - MYOCARDIAL INFARCTION [None]
  - NECROSIS OF ARTERY [None]
  - PERITONITIS [None]
  - SHOCK HAEMORRHAGIC [None]
